FAERS Safety Report 20045635 (Version 3)
Quarter: 2021Q4

REPORT INFORMATION
  Report Type: Report from Study
  Country: US (occurrence: US)
  Receive Date: 20211108
  Receipt Date: 20211216
  Transmission Date: 20220303
  Serious: Yes (Death, Other)
  Sender: FDA-Public Use
  Company Number: US-GILEAD-2021-0555751

PATIENT
  Age: 48 Year
  Sex: Female

DRUGS (1)
  1. BICTEGRAVIR\EMTRICITABINE\TENOFOVIR ALAFENAMIDE [Suspect]
     Active Substance: BICTEGRAVIR\EMTRICITABINE\TENOFOVIR ALAFENAMIDE
     Indication: Off label use
     Dosage: 275 MG, QD
     Route: 048

REACTIONS (3)
  - Pneumocystis jirovecii pneumonia [Fatal]
  - Huntington^s disease [Not Recovered/Not Resolved]
  - Off label use [Not Recovered/Not Resolved]

NARRATIVE: CASE EVENT DATE: 20211210
